FAERS Safety Report 19353021 (Version 6)
Quarter: 2021Q4

REPORT INFORMATION
  Report Type: Report from Study
  Country: CN (occurrence: CN)
  Receive Date: 20210601
  Receipt Date: 20211001
  Transmission Date: 20220303
  Serious: Yes (Life-Threatening, Hospitalization)
  Sender: FDA-Public Use
  Company Number: 2021A462012

PATIENT
  Age: 18341 Day
  Sex: Female

DRUGS (269)
  1. OSIMERTINIB [Suspect]
     Active Substance: OSIMERTINIB
     Indication: Non-small cell lung cancer
     Route: 048
     Dates: start: 20210420, end: 20210426
  2. OSIMERTINIB [Suspect]
     Active Substance: OSIMERTINIB
     Indication: Non-small cell lung cancer
     Route: 048
     Dates: start: 20210428, end: 20210505
  3. OSIMERTINIB [Suspect]
     Active Substance: OSIMERTINIB
     Indication: Non-small cell lung cancer
     Route: 048
     Dates: start: 20210509, end: 20210512
  4. OSIMERTINIB [Suspect]
     Active Substance: OSIMERTINIB
     Indication: Non-small cell lung cancer
     Route: 048
     Dates: start: 20210513, end: 20210515
  5. OSIMERTINIB [Suspect]
     Active Substance: OSIMERTINIB
     Indication: Non-small cell lung cancer
     Route: 048
     Dates: start: 20210506, end: 20210508
  6. OSIMERTINIB [Suspect]
     Active Substance: OSIMERTINIB
     Indication: Non-small cell lung cancer
     Route: 048
     Dates: start: 20210519, end: 20210530
  7. OSIMERTINIB [Suspect]
     Active Substance: OSIMERTINIB
     Indication: Non-small cell lung cancer
     Route: 048
     Dates: start: 20210531, end: 20210601
  8. OSIMERTINIB [Suspect]
     Active Substance: OSIMERTINIB
     Indication: Non-small cell lung cancer
     Route: 048
     Dates: start: 20210517, end: 20210518
  9. OSIMERTINIB [Suspect]
     Active Substance: OSIMERTINIB
     Indication: Non-small cell lung cancer
     Route: 048
     Dates: start: 20210602, end: 20210621
  10. OSIMERTINIB [Suspect]
     Active Substance: OSIMERTINIB
     Indication: Non-small cell lung cancer
     Route: 048
     Dates: start: 20210622, end: 20210715
  11. OSIMERTINIB [Suspect]
     Active Substance: OSIMERTINIB
     Indication: Non-small cell lung cancer
     Route: 048
     Dates: start: 20210716, end: 20210719
  12. OSIMERTINIB [Suspect]
     Active Substance: OSIMERTINIB
     Indication: Non-small cell lung cancer
     Route: 048
     Dates: start: 20210720, end: 20210720
  13. OSIMERTINIB [Suspect]
     Active Substance: OSIMERTINIB
     Indication: Non-small cell lung cancer
     Route: 048
     Dates: start: 20210721, end: 20210724
  14. OSIMERTINIB [Suspect]
     Active Substance: OSIMERTINIB
     Indication: Non-small cell lung cancer
     Route: 048
     Dates: start: 20210725, end: 20210725
  15. OSIMERTINIB [Suspect]
     Active Substance: OSIMERTINIB
     Indication: Non-small cell lung cancer
     Route: 048
     Dates: start: 20210726, end: 20210802
  16. OSIMERTINIB [Suspect]
     Active Substance: OSIMERTINIB
     Indication: Non-small cell lung cancer
     Route: 048
     Dates: start: 20210427, end: 20210427
  17. OSIMERTINIB [Suspect]
     Active Substance: OSIMERTINIB
     Indication: Non-small cell lung cancer
     Route: 048
     Dates: start: 20210803
  18. OSIMERTINIB [Suspect]
     Active Substance: OSIMERTINIB
     Indication: Non-small cell lung cancer
     Route: 048
     Dates: start: 20210516, end: 20210516
  19. OSIMERTINIB [Suspect]
     Active Substance: OSIMERTINIB
     Indication: Non-small cell lung cancer
     Route: 048
     Dates: start: 20210824
  20. CARBOPLATIN [Suspect]
     Active Substance: CARBOPLATIN
     Indication: Non-small cell lung cancer
     Dosage: 5 AUC EVERY THREE WEEKS
     Route: 042
     Dates: start: 20210420, end: 20210420
  21. CARBOPLATIN [Suspect]
     Active Substance: CARBOPLATIN
     Indication: Non-small cell lung cancer
     Dosage: 5 AUC EVERY THREE WEEKS
     Route: 042
     Dates: start: 20210513, end: 20210513
  22. PEMETREXED [Suspect]
     Active Substance: PEMETREXED
     Indication: Non-small cell lung cancer
     Dosage: 500 MG/M2 EVERY THREE WEEKS
     Route: 042
     Dates: start: 20210420, end: 20210420
  23. PEMETREXED [Suspect]
     Active Substance: PEMETREXED
     Indication: Non-small cell lung cancer
     Dosage: 500 MG/M2 EVERY THREE WEEKS
     Route: 042
     Dates: start: 20210513, end: 20210513
  24. PEMETREXED [Suspect]
     Active Substance: PEMETREXED
     Indication: Non-small cell lung cancer
     Dosage: 500 MG/M2 EVERY THREE WEEKS
     Route: 042
     Dates: start: 20210602, end: 20210602
  25. PEMETREXED [Suspect]
     Active Substance: PEMETREXED
     Indication: Non-small cell lung cancer
     Dosage: 500 MG/M2 EVERY THREE WEEKS
     Route: 042
     Dates: start: 20210622, end: 20210622
  26. PEMETREXED [Suspect]
     Active Substance: PEMETREXED
     Indication: Non-small cell lung cancer
     Dosage: 500 MG/M2 EVERY THREE WEEKS
     Route: 042
     Dates: start: 20210716, end: 20210716
  27. PEMETREXED [Suspect]
     Active Substance: PEMETREXED
     Indication: Non-small cell lung cancer
     Dosage: 500 MG/M2 EVERY THREE WEEKS
     Route: 042
     Dates: start: 20210803, end: 20210803
  28. PEMETREXED [Suspect]
     Active Substance: PEMETREXED
     Indication: Non-small cell lung cancer
     Dosage: 500 MG/M2 EVERY THREE WEEKS
     Route: 042
     Dates: start: 20210824, end: 20210824
  29. PEMETREXED [Suspect]
     Active Substance: PEMETREXED
     Indication: Non-small cell lung cancer
     Dosage: 500 MG/M2 EVERY THREE WEEKS
     Route: 042
     Dates: start: 20210916, end: 20210916
  30. LIDOCAINE HYDROCHLORID E INJECTION [Concomitant]
     Indication: Anaesthesia
     Route: 058
     Dates: start: 20210402, end: 20210402
  31. LIDOCAINE HYDROCHLORID E INJECTION [Concomitant]
     Indication: Anaesthesia
     Route: 058
     Dates: start: 20210420, end: 20210420
  32. LIDOCAINE HYDROCHLORID E INJECTION [Concomitant]
     Indication: Anaesthesia
     Route: 058
     Dates: start: 20210402, end: 20210402
  33. LIDOCAINE HYDROCHLORID E INJECTION [Concomitant]
     Indication: Anaesthesia
     Route: 058
     Dates: start: 20210420, end: 20210420
  34. LIDOCAINE HYDROCHLORID E INJECTION [Concomitant]
     Indication: Anaesthesia
     Route: 058
     Dates: start: 20210402, end: 20210402
  35. LIDOCAINE HYDROCHLORID E INJECTION [Concomitant]
     Indication: Anaesthesia
     Route: 058
     Dates: start: 20210420, end: 20210420
  36. FRAXIPARIN E [Concomitant]
     Indication: Thrombosis
     Dosage: 6150.00 AXAIU EVERY DAY
     Route: 058
     Dates: start: 20210401, end: 20210406
  37. FRAXIPARIN E [Concomitant]
     Indication: Thrombosis
     Dosage: 6150.00 AXAIU EVERY DAY
     Route: 058
     Dates: start: 20210401, end: 20210406
  38. FRAXIPARIN E [Concomitant]
     Indication: Thrombosis
     Dosage: 6150.00 AXAIU EVERY DAY
     Route: 058
     Dates: start: 20210401, end: 20210406
  39. FRAXIPARIN E [Concomitant]
     Indication: Thrombosis
     Dosage: 6150.00 AXAIU EVERY DAY
     Route: 058
     Dates: start: 20210401, end: 20210406
  40. FRAXIPARIN E [Concomitant]
     Indication: Thrombosis
     Dosage: 6150.00 AXAIU EVERY DAY
     Route: 058
     Dates: start: 20210401, end: 20210406
  41. FRAXIPARIN E [Concomitant]
     Indication: Thrombosis
     Dosage: 6150.00 AXAIU EVERY DAY
     Route: 058
     Dates: start: 20210401, end: 20210406
  42. AMBROXOL HYDROCHLORIDE [Concomitant]
     Active Substance: AMBROXOL HYDROCHLORIDE
     Indication: Productive cough
     Route: 042
     Dates: start: 20210331, end: 20210406
  43. AMBROXOL HYDROCHLORIDE [Concomitant]
     Active Substance: AMBROXOL HYDROCHLORIDE
     Indication: Cough
     Route: 042
     Dates: start: 20210331, end: 20210406
  44. AMBROXOL HYDROCHLORIDE [Concomitant]
     Active Substance: AMBROXOL HYDROCHLORIDE
     Indication: Productive cough
     Route: 042
     Dates: start: 20210521, end: 20210530
  45. AMBROXOL HYDROCHLORIDE [Concomitant]
     Active Substance: AMBROXOL HYDROCHLORIDE
     Indication: Cough
     Route: 042
     Dates: start: 20210521, end: 20210530
  46. AMBROXOL HYDROCHLORIDE [Concomitant]
     Active Substance: AMBROXOL HYDROCHLORIDE
     Indication: Productive cough
     Route: 042
     Dates: start: 20210331, end: 20210406
  47. AMBROXOL HYDROCHLORIDE [Concomitant]
     Active Substance: AMBROXOL HYDROCHLORIDE
     Indication: Cough
     Route: 042
     Dates: start: 20210331, end: 20210406
  48. AMBROXOL HYDROCHLORIDE [Concomitant]
     Active Substance: AMBROXOL HYDROCHLORIDE
     Indication: Productive cough
     Route: 042
     Dates: start: 20210521, end: 20210530
  49. AMBROXOL HYDROCHLORIDE [Concomitant]
     Active Substance: AMBROXOL HYDROCHLORIDE
     Indication: Cough
     Route: 042
     Dates: start: 20210521, end: 20210530
  50. AMBROXOL HYDROCHLORIDE [Concomitant]
     Active Substance: AMBROXOL HYDROCHLORIDE
     Indication: Productive cough
     Route: 042
     Dates: start: 20210331, end: 20210406
  51. AMBROXOL HYDROCHLORIDE [Concomitant]
     Active Substance: AMBROXOL HYDROCHLORIDE
     Indication: Cough
     Route: 042
     Dates: start: 20210331, end: 20210406
  52. AMBROXOL HYDROCHLORIDE [Concomitant]
     Active Substance: AMBROXOL HYDROCHLORIDE
     Indication: Productive cough
     Route: 042
     Dates: start: 20210521, end: 20210530
  53. AMBROXOL HYDROCHLORIDE [Concomitant]
     Active Substance: AMBROXOL HYDROCHLORIDE
     Indication: Cough
     Route: 042
     Dates: start: 20210521, end: 20210530
  54. DOXOFYLLINE FOR INJECTION [Concomitant]
     Indication: Productive cough
     Route: 042
     Dates: start: 20210401, end: 20210406
  55. DOXOFYLLINE FOR INJECTION [Concomitant]
     Indication: Cough
     Route: 042
     Dates: start: 20210401, end: 20210406
  56. DOXOFYLLINE FOR INJECTION [Concomitant]
     Indication: Prophylaxis
     Route: 042
     Dates: start: 20210401, end: 20210406
  57. DOXOFYLLINE FOR INJECTION [Concomitant]
     Indication: Productive cough
     Route: 042
     Dates: start: 20210521, end: 20210603
  58. DOXOFYLLINE FOR INJECTION [Concomitant]
     Indication: Cough
     Route: 042
     Dates: start: 20210521, end: 20210603
  59. DOXOFYLLINE FOR INJECTION [Concomitant]
     Indication: Prophylaxis
     Route: 042
     Dates: start: 20210521, end: 20210603
  60. DOXOFYLLINE FOR INJECTION [Concomitant]
     Indication: Productive cough
     Route: 042
     Dates: start: 20210331, end: 20210331
  61. DOXOFYLLINE FOR INJECTION [Concomitant]
     Indication: Cough
     Route: 042
     Dates: start: 20210331, end: 20210331
  62. DOXOFYLLINE FOR INJECTION [Concomitant]
     Indication: Prophylaxis
     Route: 042
     Dates: start: 20210331, end: 20210331
  63. DOXOFYLLINE FOR INJECTION [Concomitant]
     Indication: Productive cough
     Route: 042
     Dates: start: 20210401, end: 20210406
  64. DOXOFYLLINE FOR INJECTION [Concomitant]
     Indication: Cough
     Route: 042
     Dates: start: 20210401, end: 20210406
  65. DOXOFYLLINE FOR INJECTION [Concomitant]
     Indication: Prophylaxis
     Route: 042
     Dates: start: 20210401, end: 20210406
  66. DOXOFYLLINE FOR INJECTION [Concomitant]
     Indication: Productive cough
     Route: 042
     Dates: start: 20210521, end: 20210603
  67. DOXOFYLLINE FOR INJECTION [Concomitant]
     Indication: Cough
     Route: 042
     Dates: start: 20210521, end: 20210603
  68. DOXOFYLLINE FOR INJECTION [Concomitant]
     Indication: Prophylaxis
     Route: 042
     Dates: start: 20210521, end: 20210603
  69. DOXOFYLLINE FOR INJECTION [Concomitant]
     Indication: Productive cough
     Route: 042
     Dates: start: 20210331, end: 20210331
  70. DOXOFYLLINE FOR INJECTION [Concomitant]
     Indication: Cough
     Route: 042
     Dates: start: 20210331, end: 20210331
  71. DOXOFYLLINE FOR INJECTION [Concomitant]
     Indication: Prophylaxis
     Route: 042
     Dates: start: 20210331, end: 20210331
  72. DOXOFYLLINE FOR INJECTION [Concomitant]
     Indication: Productive cough
     Route: 042
     Dates: start: 20210401, end: 20210406
  73. DOXOFYLLINE FOR INJECTION [Concomitant]
     Indication: Cough
     Route: 042
     Dates: start: 20210401, end: 20210406
  74. DOXOFYLLINE FOR INJECTION [Concomitant]
     Indication: Prophylaxis
     Route: 042
     Dates: start: 20210401, end: 20210406
  75. DOXOFYLLINE FOR INJECTION [Concomitant]
     Indication: Productive cough
     Route: 042
     Dates: start: 20210521, end: 20210603
  76. DOXOFYLLINE FOR INJECTION [Concomitant]
     Indication: Cough
     Route: 042
     Dates: start: 20210521, end: 20210603
  77. DOXOFYLLINE FOR INJECTION [Concomitant]
     Indication: Prophylaxis
     Route: 042
     Dates: start: 20210521, end: 20210603
  78. DOXOFYLLINE FOR INJECTION [Concomitant]
     Indication: Productive cough
     Route: 042
     Dates: start: 20210331, end: 20210331
  79. DOXOFYLLINE FOR INJECTION [Concomitant]
     Indication: Cough
     Route: 042
     Dates: start: 20210331, end: 20210331
  80. DOXOFYLLINE FOR INJECTION [Concomitant]
     Indication: Prophylaxis
     Route: 042
     Dates: start: 20210331, end: 20210331
  81. ACETYLCYSTEIN E SOLUTION FOR INHALATION [Concomitant]
     Indication: Productive cough
     Route: 055
     Dates: start: 20210331, end: 20210406
  82. ACETYLCYSTEIN E SOLUTION FOR INHALATION [Concomitant]
     Indication: Treatment delayed
     Route: 055
     Dates: start: 20210331, end: 20210406
  83. ACETYLCYSTEIN E SOLUTION FOR INHALATION [Concomitant]
     Indication: Productive cough
     Route: 055
     Dates: start: 20210521, end: 20210603
  84. ACETYLCYSTEIN E SOLUTION FOR INHALATION [Concomitant]
     Indication: Treatment delayed
     Route: 055
     Dates: start: 20210521, end: 20210603
  85. ACETYLCYSTEIN E SOLUTION FOR INHALATION [Concomitant]
     Indication: Productive cough
     Route: 055
     Dates: start: 20210331, end: 20210406
  86. ACETYLCYSTEIN E SOLUTION FOR INHALATION [Concomitant]
     Indication: Treatment delayed
     Route: 055
     Dates: start: 20210331, end: 20210406
  87. ACETYLCYSTEIN E SOLUTION FOR INHALATION [Concomitant]
     Indication: Productive cough
     Route: 055
     Dates: start: 20210521, end: 20210603
  88. ACETYLCYSTEIN E SOLUTION FOR INHALATION [Concomitant]
     Indication: Treatment delayed
     Route: 055
     Dates: start: 20210521, end: 20210603
  89. ACETYLCYSTEIN E SOLUTION FOR INHALATION [Concomitant]
     Indication: Productive cough
     Route: 055
     Dates: start: 20210331, end: 20210406
  90. ACETYLCYSTEIN E SOLUTION FOR INHALATION [Concomitant]
     Indication: Treatment delayed
     Route: 055
     Dates: start: 20210331, end: 20210406
  91. ACETYLCYSTEIN E SOLUTION FOR INHALATION [Concomitant]
     Indication: Productive cough
     Route: 055
     Dates: start: 20210521, end: 20210603
  92. ACETYLCYSTEIN E SOLUTION FOR INHALATION [Concomitant]
     Indication: Treatment delayed
     Route: 055
     Dates: start: 20210521, end: 20210603
  93. BRICANYL [Concomitant]
     Active Substance: TERBUTALINE SULFATE
     Indication: Productive cough
     Route: 055
     Dates: start: 20210331, end: 20210406
  94. BRICANYL [Concomitant]
     Active Substance: TERBUTALINE SULFATE
     Indication: Productive cough
     Route: 055
     Dates: start: 20210331, end: 20210406
  95. BRICANYL [Concomitant]
     Active Substance: TERBUTALINE SULFATE
     Indication: Productive cough
     Route: 055
     Dates: start: 20210331, end: 20210406
  96. BUDESONIDE [Concomitant]
     Active Substance: BUDESONIDE
     Indication: Productive cough
     Route: 055
     Dates: start: 20210331, end: 20210406
  97. BUDESONIDE [Concomitant]
     Active Substance: BUDESONIDE
     Indication: Treatment delayed
     Route: 055
     Dates: start: 20210331, end: 20210406
  98. BUDESONIDE [Concomitant]
     Active Substance: BUDESONIDE
     Indication: Productive cough
     Route: 055
     Dates: start: 20210521, end: 20210603
  99. BUDESONIDE [Concomitant]
     Active Substance: BUDESONIDE
     Indication: Treatment delayed
     Route: 055
     Dates: start: 20210521, end: 20210603
  100. BUDESONIDE [Concomitant]
     Active Substance: BUDESONIDE
     Indication: Productive cough
     Route: 055
     Dates: start: 20210331, end: 20210406
  101. BUDESONIDE [Concomitant]
     Active Substance: BUDESONIDE
     Indication: Treatment delayed
     Route: 055
     Dates: start: 20210331, end: 20210406
  102. BUDESONIDE [Concomitant]
     Active Substance: BUDESONIDE
     Indication: Productive cough
     Route: 055
     Dates: start: 20210521, end: 20210603
  103. BUDESONIDE [Concomitant]
     Active Substance: BUDESONIDE
     Indication: Treatment delayed
     Route: 055
     Dates: start: 20210521, end: 20210603
  104. BUDESONIDE [Concomitant]
     Active Substance: BUDESONIDE
     Indication: Productive cough
     Route: 055
     Dates: start: 20210331, end: 20210406
  105. BUDESONIDE [Concomitant]
     Active Substance: BUDESONIDE
     Indication: Treatment delayed
     Route: 055
     Dates: start: 20210331, end: 20210406
  106. BUDESONIDE [Concomitant]
     Active Substance: BUDESONIDE
     Indication: Productive cough
     Route: 055
     Dates: start: 20210521, end: 20210603
  107. BUDESONIDE [Concomitant]
     Active Substance: BUDESONIDE
     Indication: Treatment delayed
     Route: 055
     Dates: start: 20210521, end: 20210603
  108. CALCIUM GLUCONATE\DEXTROSE\MAGNESIUM CHLORIDE\POTASSIUM CHLORIDE\SODIU [Concomitant]
     Active Substance: CALCIUM GLUCONATE\DEXTROSE\MAGNESIUM CHLORIDE\POTASSIUM CHLORIDE\SODIUM ACETATE\SODIUM CHLORIDE\TRIS
     Indication: Electrocution
     Route: 042
     Dates: start: 20210404, end: 20210406
  109. CALCIUM GLUCONATE\DEXTROSE\MAGNESIUM CHLORIDE\POTASSIUM CHLORIDE\SODIU [Concomitant]
     Active Substance: CALCIUM GLUCONATE\DEXTROSE\MAGNESIUM CHLORIDE\POTASSIUM CHLORIDE\SODIUM ACETATE\SODIUM CHLORIDE\TRIS
     Indication: Electrocution
     Route: 042
     Dates: start: 20210404, end: 20210406
  110. CALCIUM GLUCONATE\DEXTROSE\MAGNESIUM CHLORIDE\POTASSIUM CHLORIDE\SODIU [Concomitant]
     Active Substance: CALCIUM GLUCONATE\DEXTROSE\MAGNESIUM CHLORIDE\POTASSIUM CHLORIDE\SODIUM ACETATE\SODIUM CHLORIDE\TRIS
     Indication: Electrocution
     Route: 042
     Dates: start: 20210404, end: 20210406
  111. METOCLOPRAMIDE DIHYDROCHLORIDE INJECTION [Concomitant]
     Indication: Prophylaxis of nausea and vomiting
     Route: 030
     Dates: start: 20210420, end: 20210420
  112. METOCLOPRAMIDE DIHYDROCHLORIDE INJECTION [Concomitant]
     Indication: Prophylaxis
     Route: 030
     Dates: start: 20210420, end: 20210420
  113. METOCLOPRAMIDE DIHYDROCHLORIDE INJECTION [Concomitant]
     Indication: Prophylaxis of nausea and vomiting
     Route: 030
     Dates: start: 20210513, end: 20210513
  114. METOCLOPRAMIDE DIHYDROCHLORIDE INJECTION [Concomitant]
     Indication: Prophylaxis
     Route: 030
     Dates: start: 20210513, end: 20210513
  115. METOCLOPRAMIDE DIHYDROCHLORIDE INJECTION [Concomitant]
     Indication: Prophylaxis of nausea and vomiting
     Route: 030
     Dates: start: 20210420, end: 20210420
  116. METOCLOPRAMIDE DIHYDROCHLORIDE INJECTION [Concomitant]
     Indication: Prophylaxis
     Route: 030
     Dates: start: 20210420, end: 20210420
  117. METOCLOPRAMIDE DIHYDROCHLORIDE INJECTION [Concomitant]
     Indication: Prophylaxis of nausea and vomiting
     Route: 030
     Dates: start: 20210513, end: 20210513
  118. METOCLOPRAMIDE DIHYDROCHLORIDE INJECTION [Concomitant]
     Indication: Prophylaxis
     Route: 030
     Dates: start: 20210513, end: 20210513
  119. METOCLOPRAMIDE DIHYDROCHLORIDE INJECTION [Concomitant]
     Indication: Prophylaxis of nausea and vomiting
     Route: 030
     Dates: start: 20210420, end: 20210420
  120. METOCLOPRAMIDE DIHYDROCHLORIDE INJECTION [Concomitant]
     Indication: Prophylaxis
     Route: 030
     Dates: start: 20210420, end: 20210420
  121. METOCLOPRAMIDE DIHYDROCHLORIDE INJECTION [Concomitant]
     Indication: Prophylaxis of nausea and vomiting
     Route: 030
     Dates: start: 20210513, end: 20210513
  122. METOCLOPRAMIDE DIHYDROCHLORIDE INJECTION [Concomitant]
     Indication: Prophylaxis
     Route: 030
     Dates: start: 20210513, end: 20210513
  123. TROPISETRON HYDROCHLORIDE INJECTION [Concomitant]
     Indication: Prophylaxis of nausea and vomiting
     Route: 042
     Dates: start: 20210420, end: 20210420
  124. TROPISETRON HYDROCHLORIDE INJECTION [Concomitant]
     Indication: Prophylaxis
     Route: 042
     Dates: start: 20210420, end: 20210420
  125. TROPISETRON HYDROCHLORIDE INJECTION [Concomitant]
     Indication: Prophylaxis of nausea and vomiting
     Route: 042
     Dates: start: 20210513, end: 20210513
  126. TROPISETRON HYDROCHLORIDE INJECTION [Concomitant]
     Indication: Prophylaxis
     Route: 042
     Dates: start: 20210513, end: 20210513
  127. TROPISETRON HYDROCHLORIDE INJECTION [Concomitant]
     Indication: Prophylaxis of nausea and vomiting
     Route: 042
     Dates: start: 20210420, end: 20210420
  128. TROPISETRON HYDROCHLORIDE INJECTION [Concomitant]
     Indication: Prophylaxis
     Route: 042
     Dates: start: 20210420, end: 20210420
  129. TROPISETRON HYDROCHLORIDE INJECTION [Concomitant]
     Indication: Prophylaxis of nausea and vomiting
     Route: 042
     Dates: start: 20210513, end: 20210513
  130. TROPISETRON HYDROCHLORIDE INJECTION [Concomitant]
     Indication: Prophylaxis
     Route: 042
     Dates: start: 20210513, end: 20210513
  131. TROPISETRON HYDROCHLORIDE INJECTION [Concomitant]
     Indication: Prophylaxis of nausea and vomiting
     Route: 042
     Dates: start: 20210420, end: 20210420
  132. TROPISETRON HYDROCHLORIDE INJECTION [Concomitant]
     Indication: Prophylaxis
     Route: 042
     Dates: start: 20210420, end: 20210420
  133. TROPISETRON HYDROCHLORIDE INJECTION [Concomitant]
     Indication: Prophylaxis of nausea and vomiting
     Route: 042
     Dates: start: 20210513, end: 20210513
  134. TROPISETRON HYDROCHLORIDE INJECTION [Concomitant]
     Indication: Prophylaxis
     Route: 042
     Dates: start: 20210513, end: 20210513
  135. GRANISETRON HYDROCHLORID E DISPERSIBLE TABLETS [Concomitant]
     Indication: Prophylaxis of nausea and vomiting
     Route: 048
     Dates: start: 20210420, end: 20210420
  136. GRANISETRON HYDROCHLORID E DISPERSIBLE TABLETS [Concomitant]
     Indication: Treatment delayed
     Route: 048
     Dates: start: 20210420, end: 20210420
  137. GRANISETRON HYDROCHLORID E DISPERSIBLE TABLETS [Concomitant]
     Indication: Prophylaxis of nausea and vomiting
     Route: 048
     Dates: start: 20210421, end: 20210427
  138. GRANISETRON HYDROCHLORID E DISPERSIBLE TABLETS [Concomitant]
     Indication: Treatment delayed
     Route: 048
     Dates: start: 20210421, end: 20210427
  139. GRANISETRON HYDROCHLORID E DISPERSIBLE TABLETS [Concomitant]
     Indication: Prophylaxis of nausea and vomiting
     Route: 048
     Dates: start: 20210420, end: 20210420
  140. GRANISETRON HYDROCHLORID E DISPERSIBLE TABLETS [Concomitant]
     Indication: Treatment delayed
     Route: 048
     Dates: start: 20210420, end: 20210420
  141. GRANISETRON HYDROCHLORID E DISPERSIBLE TABLETS [Concomitant]
     Indication: Prophylaxis of nausea and vomiting
     Route: 048
     Dates: start: 20210421, end: 20210427
  142. GRANISETRON HYDROCHLORID E DISPERSIBLE TABLETS [Concomitant]
     Indication: Treatment delayed
     Route: 048
     Dates: start: 20210421, end: 20210427
  143. GRANISETRON HYDROCHLORID E DISPERSIBLE TABLETS [Concomitant]
     Indication: Prophylaxis of nausea and vomiting
     Route: 048
     Dates: start: 20210420, end: 20210420
  144. GRANISETRON HYDROCHLORID E DISPERSIBLE TABLETS [Concomitant]
     Indication: Treatment delayed
     Route: 048
     Dates: start: 20210420, end: 20210420
  145. GRANISETRON HYDROCHLORID E DISPERSIBLE TABLETS [Concomitant]
     Indication: Prophylaxis of nausea and vomiting
     Route: 048
     Dates: start: 20210421, end: 20210427
  146. GRANISETRON HYDROCHLORID E DISPERSIBLE TABLETS [Concomitant]
     Indication: Treatment delayed
     Route: 048
     Dates: start: 20210421, end: 20210427
  147. METOCLOPRAMIDE [Concomitant]
     Active Substance: METOCLOPRAMIDE
     Indication: Prophylaxis of nausea and vomiting
     Route: 048
     Dates: start: 20210420, end: 20210420
  148. METOCLOPRAMIDE [Concomitant]
     Active Substance: METOCLOPRAMIDE
     Indication: Treatment delayed
     Route: 048
     Dates: start: 20210420, end: 20210420
  149. METOCLOPRAMIDE [Concomitant]
     Active Substance: METOCLOPRAMIDE
     Indication: Decreased appetite
     Route: 048
     Dates: start: 20210420, end: 20210420
  150. METOCLOPRAMIDE [Concomitant]
     Active Substance: METOCLOPRAMIDE
     Indication: Prophylaxis of nausea and vomiting
     Route: 048
     Dates: start: 20210421, end: 20210501
  151. METOCLOPRAMIDE [Concomitant]
     Active Substance: METOCLOPRAMIDE
     Indication: Treatment delayed
     Route: 048
     Dates: start: 20210421, end: 20210501
  152. METOCLOPRAMIDE [Concomitant]
     Active Substance: METOCLOPRAMIDE
     Indication: Decreased appetite
     Route: 048
     Dates: start: 20210421, end: 20210501
  153. METOCLOPRAMIDE [Concomitant]
     Active Substance: METOCLOPRAMIDE
     Indication: Prophylaxis of nausea and vomiting
     Route: 048
     Dates: start: 20210514, end: 20210528
  154. METOCLOPRAMIDE [Concomitant]
     Active Substance: METOCLOPRAMIDE
     Indication: Treatment delayed
     Route: 048
     Dates: start: 20210514, end: 20210528
  155. METOCLOPRAMIDE [Concomitant]
     Active Substance: METOCLOPRAMIDE
     Indication: Decreased appetite
     Route: 048
     Dates: start: 20210514, end: 20210528
  156. METOCLOPRAMIDE [Concomitant]
     Active Substance: METOCLOPRAMIDE
     Indication: Prophylaxis of nausea and vomiting
     Route: 048
     Dates: start: 20210420, end: 20210420
  157. METOCLOPRAMIDE [Concomitant]
     Active Substance: METOCLOPRAMIDE
     Indication: Treatment delayed
     Route: 048
     Dates: start: 20210420, end: 20210420
  158. METOCLOPRAMIDE [Concomitant]
     Active Substance: METOCLOPRAMIDE
     Indication: Decreased appetite
     Route: 048
     Dates: start: 20210420, end: 20210420
  159. METOCLOPRAMIDE [Concomitant]
     Active Substance: METOCLOPRAMIDE
     Indication: Prophylaxis of nausea and vomiting
     Route: 048
     Dates: start: 20210421, end: 20210501
  160. METOCLOPRAMIDE [Concomitant]
     Active Substance: METOCLOPRAMIDE
     Indication: Treatment delayed
     Route: 048
     Dates: start: 20210421, end: 20210501
  161. METOCLOPRAMIDE [Concomitant]
     Active Substance: METOCLOPRAMIDE
     Indication: Decreased appetite
     Route: 048
     Dates: start: 20210421, end: 20210501
  162. METOCLOPRAMIDE [Concomitant]
     Active Substance: METOCLOPRAMIDE
     Indication: Prophylaxis of nausea and vomiting
     Route: 048
     Dates: start: 20210514, end: 20210528
  163. METOCLOPRAMIDE [Concomitant]
     Active Substance: METOCLOPRAMIDE
     Indication: Treatment delayed
     Route: 048
     Dates: start: 20210514, end: 20210528
  164. METOCLOPRAMIDE [Concomitant]
     Active Substance: METOCLOPRAMIDE
     Indication: Decreased appetite
     Route: 048
     Dates: start: 20210514, end: 20210528
  165. METOCLOPRAMIDE [Concomitant]
     Active Substance: METOCLOPRAMIDE
     Indication: Prophylaxis of nausea and vomiting
     Route: 048
     Dates: start: 20210420, end: 20210420
  166. METOCLOPRAMIDE [Concomitant]
     Active Substance: METOCLOPRAMIDE
     Indication: Treatment delayed
     Route: 048
     Dates: start: 20210420, end: 20210420
  167. METOCLOPRAMIDE [Concomitant]
     Active Substance: METOCLOPRAMIDE
     Indication: Decreased appetite
     Route: 048
     Dates: start: 20210420, end: 20210420
  168. METOCLOPRAMIDE [Concomitant]
     Active Substance: METOCLOPRAMIDE
     Indication: Prophylaxis of nausea and vomiting
     Route: 048
     Dates: start: 20210421, end: 20210501
  169. METOCLOPRAMIDE [Concomitant]
     Active Substance: METOCLOPRAMIDE
     Indication: Treatment delayed
     Route: 048
     Dates: start: 20210421, end: 20210501
  170. METOCLOPRAMIDE [Concomitant]
     Active Substance: METOCLOPRAMIDE
     Indication: Decreased appetite
     Route: 048
     Dates: start: 20210421, end: 20210501
  171. METOCLOPRAMIDE [Concomitant]
     Active Substance: METOCLOPRAMIDE
     Indication: Prophylaxis of nausea and vomiting
     Route: 048
     Dates: start: 20210514, end: 20210528
  172. METOCLOPRAMIDE [Concomitant]
     Active Substance: METOCLOPRAMIDE
     Indication: Treatment delayed
     Route: 048
     Dates: start: 20210514, end: 20210528
  173. METOCLOPRAMIDE [Concomitant]
     Active Substance: METOCLOPRAMIDE
     Indication: Decreased appetite
     Route: 048
     Dates: start: 20210514, end: 20210528
  174. AMOXICILLIN [Concomitant]
     Active Substance: AMOXICILLIN
     Indication: Cough
     Route: 048
     Dates: start: 20210502, end: 20210509
  175. AMOXICILLIN [Concomitant]
     Active Substance: AMOXICILLIN
     Indication: Upper respiratory tract infection
     Route: 048
     Dates: start: 20210502, end: 20210509
  176. AMOXICILLIN [Concomitant]
     Active Substance: AMOXICILLIN
     Indication: Cough
     Route: 048
     Dates: start: 20210502, end: 20210509
  177. AMOXICILLIN [Concomitant]
     Active Substance: AMOXICILLIN
     Indication: Upper respiratory tract infection
     Route: 048
     Dates: start: 20210502, end: 20210509
  178. AMOXICILLIN [Concomitant]
     Active Substance: AMOXICILLIN
     Indication: Cough
     Route: 048
     Dates: start: 20210502, end: 20210509
  179. AMOXICILLIN [Concomitant]
     Active Substance: AMOXICILLIN
     Indication: Upper respiratory tract infection
     Route: 048
     Dates: start: 20210502, end: 20210509
  180. AMBROXOL HYDROCHLORIDE TABLETS [Concomitant]
     Indication: Cough
     Route: 048
     Dates: start: 20210502, end: 20210509
  181. AMBROXOL HYDROCHLORIDE TABLETS [Concomitant]
     Indication: Cough
     Route: 048
     Dates: start: 20210502, end: 20210509
  182. AMBROXOL HYDROCHLORIDE TABLETS [Concomitant]
     Indication: Cough
     Route: 048
     Dates: start: 20210502, end: 20210509
  183. KANG FU XIN YE [Concomitant]
     Indication: Oropharyngeal pain
     Route: 048
     Dates: start: 20210506, end: 20210509
  184. KANG FU XIN YE [Concomitant]
     Indication: Oropharyngeal pain
     Route: 048
     Dates: start: 20210506, end: 20210509
  185. KANG FU XIN YE [Concomitant]
     Indication: Oropharyngeal pain
     Route: 048
     Dates: start: 20210506, end: 20210509
  186. RECOMBINANT HUMAN GRANULOCYTE COLONY STIMULATING FACTOR INJECTION [Concomitant]
     Indication: Leukaemia
     Route: 058
     Dates: start: 20210507, end: 20210509
  187. RECOMBINANT HUMAN GRANULOCYTE COLONY STIMULATING FACTOR INJECTION [Concomitant]
     Indication: White blood cell count
     Route: 058
     Dates: start: 20210507, end: 20210509
  188. RECOMBINANT HUMAN GRANULOCYTE COLONY STIMULATING FACTOR INJECTION [Concomitant]
     Indication: Prophylaxis
     Route: 058
     Dates: start: 20210507, end: 20210509
  189. RECOMBINANT HUMAN GRANULOCYTE COLONY STIMULATING FACTOR INJECTION [Concomitant]
     Indication: Treatment delayed
     Route: 058
     Dates: start: 20210507, end: 20210509
  190. RECOMBINANT HUMAN GRANULOCYTE COLONY STIMULATING FACTOR INJECTION [Concomitant]
     Indication: White blood cell count decreased
     Route: 058
     Dates: start: 20210507, end: 20210509
  191. RECOMBINANT HUMAN GRANULOCYTE COLONY STIMULATING FACTOR INJECTION [Concomitant]
     Indication: Leukaemia
     Route: 058
     Dates: start: 20210507, end: 20210509
  192. RECOMBINANT HUMAN GRANULOCYTE COLONY STIMULATING FACTOR INJECTION [Concomitant]
     Indication: White blood cell count
     Route: 058
     Dates: start: 20210507, end: 20210509
  193. RECOMBINANT HUMAN GRANULOCYTE COLONY STIMULATING FACTOR INJECTION [Concomitant]
     Indication: Prophylaxis
     Route: 058
     Dates: start: 20210507, end: 20210509
  194. RECOMBINANT HUMAN GRANULOCYTE COLONY STIMULATING FACTOR INJECTION [Concomitant]
     Indication: Treatment delayed
     Route: 058
     Dates: start: 20210507, end: 20210509
  195. RECOMBINANT HUMAN GRANULOCYTE COLONY STIMULATING FACTOR INJECTION [Concomitant]
     Indication: White blood cell count decreased
     Route: 058
     Dates: start: 20210507, end: 20210509
  196. RECOMBINANT HUMAN GRANULOCYTE COLONY STIMULATING FACTOR INJECTION [Concomitant]
     Indication: Leukaemia
     Route: 058
     Dates: start: 20210507, end: 20210509
  197. RECOMBINANT HUMAN GRANULOCYTE COLONY STIMULATING FACTOR INJECTION [Concomitant]
     Indication: White blood cell count
     Route: 058
     Dates: start: 20210507, end: 20210509
  198. RECOMBINANT HUMAN GRANULOCYTE COLONY STIMULATING FACTOR INJECTION [Concomitant]
     Indication: Prophylaxis
     Route: 058
     Dates: start: 20210507, end: 20210509
  199. RECOMBINANT HUMAN GRANULOCYTE COLONY STIMULATING FACTOR INJECTION [Concomitant]
     Indication: Treatment delayed
     Route: 058
     Dates: start: 20210507, end: 20210509
  200. RECOMBINANT HUMAN GRANULOCYTE COLONY STIMULATING FACTOR INJECTION [Concomitant]
     Indication: White blood cell count decreased
     Route: 058
     Dates: start: 20210507, end: 20210509
  201. LEUCOGEN TABLETS [Concomitant]
     Indication: Leukaemia
     Route: 048
     Dates: start: 20210507, end: 20210515
  202. LEUCOGEN TABLETS [Concomitant]
     Indication: Treatment delayed
     Route: 048
     Dates: start: 20210507, end: 20210515
  203. LEUCOGEN TABLETS [Concomitant]
     Indication: Platelet count
     Route: 048
     Dates: start: 20210507, end: 20210515
  204. LEUCOGEN TABLETS [Concomitant]
     Indication: Leukaemia
     Route: 048
     Dates: start: 20210507, end: 20210515
  205. LEUCOGEN TABLETS [Concomitant]
     Indication: Treatment delayed
     Route: 048
     Dates: start: 20210507, end: 20210515
  206. LEUCOGEN TABLETS [Concomitant]
     Indication: Platelet count
     Route: 048
     Dates: start: 20210507, end: 20210515
  207. LEUCOGEN TABLETS [Concomitant]
     Indication: Leukaemia
     Route: 048
     Dates: start: 20210507, end: 20210515
  208. LEUCOGEN TABLETS [Concomitant]
     Indication: Treatment delayed
     Route: 048
     Dates: start: 20210507, end: 20210515
  209. LEUCOGEN TABLETS [Concomitant]
     Indication: Platelet count
     Route: 048
     Dates: start: 20210507, end: 20210515
  210. RECOMBINANT HUMAN GRANULOCYTE COLONY-STIM ULATING FACTOR INJECTION [Concomitant]
     Indication: Leukaemia
     Route: 058
     Dates: start: 20210511, end: 20210512
  211. RECOMBINANT HUMAN GRANULOCYTE COLONY-STIM ULATING FACTOR INJECTION [Concomitant]
     Indication: White blood cell count decreased
     Route: 058
     Dates: start: 20210511, end: 20210512
  212. RECOMBINANT HUMAN GRANULOCYTE COLONY-STIM ULATING FACTOR INJECTION [Concomitant]
     Indication: Leukaemia
     Route: 058
     Dates: start: 20210511, end: 20210512
  213. RECOMBINANT HUMAN GRANULOCYTE COLONY-STIM ULATING FACTOR INJECTION [Concomitant]
     Indication: White blood cell count decreased
     Route: 058
     Dates: start: 20210511, end: 20210512
  214. RECOMBINANT HUMAN GRANULOCYTE COLONY-STIM ULATING FACTOR INJECTION [Concomitant]
     Indication: Leukaemia
     Route: 058
     Dates: start: 20210511, end: 20210512
  215. RECOMBINANT HUMAN GRANULOCYTE COLONY-STIM ULATING FACTOR INJECTION [Concomitant]
     Indication: White blood cell count decreased
     Route: 058
     Dates: start: 20210511, end: 20210512
  216. SODIUM LBANDRONATE INJECTION [Concomitant]
     Indication: Metastases to bone
     Route: 042
     Dates: start: 20210513, end: 20210513
  217. SODIUM LBANDRONATE INJECTION [Concomitant]
     Indication: Metastases to bone
     Route: 042
     Dates: start: 20210513, end: 20210513
  218. SODIUM LBANDRONATE INJECTION [Concomitant]
     Indication: Metastases to bone
     Route: 042
     Dates: start: 20210513, end: 20210513
  219. FOSAPREPITAN T DIMEGLUMIN ER FOR INJECTION [Concomitant]
     Indication: Prophylaxis of nausea and vomiting
     Route: 042
     Dates: start: 20210513, end: 20210513
  220. FOSAPREPITAN T DIMEGLUMIN ER FOR INJECTION [Concomitant]
     Indication: Prophylaxis of nausea and vomiting
     Route: 042
     Dates: start: 20210513, end: 20210513
  221. FOSAPREPITAN T DIMEGLUMIN ER FOR INJECTION [Concomitant]
     Indication: Prophylaxis of nausea and vomiting
     Route: 042
     Dates: start: 20210513, end: 20210513
  222. DIPHENHYDRA MINE HYDROCHLORID E INJECTION [Concomitant]
     Indication: Hypersensitivity
     Route: 030
     Dates: start: 20210513, end: 20210513
  223. DIPHENHYDRA MINE HYDROCHLORID E INJECTION [Concomitant]
     Indication: Prophylaxis
     Route: 030
     Dates: start: 20210513, end: 20210513
  224. DIPHENHYDRA MINE HYDROCHLORID E INJECTION [Concomitant]
     Indication: Prophylaxis
     Route: 030
     Dates: start: 20210513, end: 20210513
  225. DIPHENHYDRA MINE HYDROCHLORID E INJECTION [Concomitant]
     Indication: Hypersensitivity
     Route: 030
     Dates: start: 20210513, end: 20210513
  226. DIPHENHYDRA MINE HYDROCHLORID E INJECTION [Concomitant]
     Indication: Prophylaxis
     Route: 030
     Dates: start: 20210513, end: 20210513
  227. DIPHENHYDRA MINE HYDROCHLORID E INJECTION [Concomitant]
     Indication: Prophylaxis
     Route: 030
     Dates: start: 20210513, end: 20210513
  228. DIPHENHYDRA MINE HYDROCHLORID E INJECTION [Concomitant]
     Indication: Hypersensitivity
     Route: 030
     Dates: start: 20210513, end: 20210513
  229. DIPHENHYDRA MINE HYDROCHLORID E INJECTION [Concomitant]
     Indication: Prophylaxis
     Route: 030
     Dates: start: 20210513, end: 20210513
  230. DIPHENHYDRA MINE HYDROCHLORID E INJECTION [Concomitant]
     Indication: Prophylaxis
     Route: 030
     Dates: start: 20210513, end: 20210513
  231. PEGYLATED RECOMBINANT HUMAN GRANULOCYTE COLONY-STIM ULATING FACTOR ... [Concomitant]
     Indication: White blood cell count
     Route: 058
     Dates: start: 20210513, end: 20210513
  232. PEGYLATED RECOMBINANT HUMAN GRANULOCYTE COLONY-STIM ULATING FACTOR ... [Concomitant]
     Indication: White blood cell count
     Route: 058
     Dates: start: 20210513, end: 20210513
  233. PEGYLATED RECOMBINANT HUMAN GRANULOCYTE COLONY-STIM ULATING FACTOR ... [Concomitant]
     Indication: White blood cell count
     Route: 058
     Dates: start: 20210513, end: 20210513
  234. RECOMBINANT HUMANTHRO MBOPOIETIN INJECTION [Concomitant]
     Indication: Leukaemia
     Dosage: 30000.00 U EVERY DAY
     Route: 058
     Dates: start: 20210513, end: 20210513
  235. RECOMBINANT HUMANTHRO MBOPOIETIN INJECTION [Concomitant]
     Indication: Thrombocytopenia
     Dosage: 30000.00 U EVERY DAY
     Route: 058
     Dates: start: 20210513, end: 20210513
  236. RECOMBINANT HUMANTHRO MBOPOIETIN INJECTION [Concomitant]
     Indication: Platelet count decreased
     Dosage: 30000.00 U EVERY DAY
     Route: 058
     Dates: start: 20210513, end: 20210513
  237. RECOMBINANT HUMANTHRO MBOPOIETIN INJECTION [Concomitant]
     Indication: Leukaemia
     Dosage: 15000.00 U EVERY DAY
     Route: 058
     Dates: start: 20210521, end: 20210531
  238. RECOMBINANT HUMANTHRO MBOPOIETIN INJECTION [Concomitant]
     Indication: Thrombocytopenia
     Dosage: 15000.00 U EVERY DAY
     Route: 058
     Dates: start: 20210521, end: 20210531
  239. RECOMBINANT HUMANTHRO MBOPOIETIN INJECTION [Concomitant]
     Indication: Platelet count decreased
     Dosage: 15000.00 U EVERY DAY
     Route: 058
     Dates: start: 20210521, end: 20210531
  240. RECOMBINANT HUMANTHRO MBOPOIETIN INJECTION [Concomitant]
     Indication: Leukaemia
     Dosage: 30000.00 U EVERY DAY
     Route: 058
     Dates: start: 20210513, end: 20210513
  241. RECOMBINANT HUMANTHRO MBOPOIETIN INJECTION [Concomitant]
     Indication: Thrombocytopenia
     Dosage: 30000.00 U EVERY DAY
     Route: 058
     Dates: start: 20210513, end: 20210513
  242. RECOMBINANT HUMANTHRO MBOPOIETIN INJECTION [Concomitant]
     Indication: Platelet count decreased
     Dosage: 30000.00 U EVERY DAY
     Route: 058
     Dates: start: 20210513, end: 20210513
  243. RECOMBINANT HUMANTHRO MBOPOIETIN INJECTION [Concomitant]
     Indication: Leukaemia
     Dosage: 15000.00 U EVERY DAY
     Route: 058
     Dates: start: 20210521, end: 20210531
  244. RECOMBINANT HUMANTHRO MBOPOIETIN INJECTION [Concomitant]
     Indication: Thrombocytopenia
     Dosage: 15000.00 U EVERY DAY
     Route: 058
     Dates: start: 20210521, end: 20210531
  245. RECOMBINANT HUMANTHRO MBOPOIETIN INJECTION [Concomitant]
     Indication: Platelet count decreased
     Dosage: 15000.00 U EVERY DAY
     Route: 058
     Dates: start: 20210521, end: 20210531
  246. RECOMBINANT HUMANTHRO MBOPOIETIN INJECTION [Concomitant]
     Indication: Leukaemia
     Dosage: 30000.00 U EVERY DAY
     Route: 058
     Dates: start: 20210513, end: 20210513
  247. RECOMBINANT HUMANTHRO MBOPOIETIN INJECTION [Concomitant]
     Indication: Thrombocytopenia
     Dosage: 30000.00 U EVERY DAY
     Route: 058
     Dates: start: 20210513, end: 20210513
  248. RECOMBINANT HUMANTHRO MBOPOIETIN INJECTION [Concomitant]
     Indication: Platelet count decreased
     Dosage: 30000.00 U EVERY DAY
     Route: 058
     Dates: start: 20210513, end: 20210513
  249. RECOMBINANT HUMANTHRO MBOPOIETIN INJECTION [Concomitant]
     Indication: Leukaemia
     Dosage: 15000.00 U EVERY DAY
     Route: 058
     Dates: start: 20210521, end: 20210531
  250. RECOMBINANT HUMANTHRO MBOPOIETIN INJECTION [Concomitant]
     Indication: Thrombocytopenia
     Dosage: 15000.00 U EVERY DAY
     Route: 058
     Dates: start: 20210521, end: 20210531
  251. RECOMBINANT HUMANTHRO MBOPOIETIN INJECTION [Concomitant]
     Indication: Platelet count decreased
     Dosage: 15000.00 U EVERY DAY
     Route: 058
     Dates: start: 20210521, end: 20210531
  252. CEFOPERAZON E SODIUM AND SULBACTAM SODIUM FOR INJECTION [Concomitant]
     Indication: Febrile neutropenia
     Route: 042
     Dates: start: 20210521, end: 20210524
  253. CEFOPERAZON E SODIUM AND SULBACTAM SODIUM FOR INJECTION [Concomitant]
     Indication: Treatment delayed
     Route: 042
     Dates: start: 20210521, end: 20210524
  254. CEFOPERAZON E SODIUM AND SULBACTAM SODIUM FOR INJECTION [Concomitant]
     Indication: Febrile neutropenia
     Route: 042
     Dates: start: 20210521, end: 20210524
  255. CEFOPERAZON E SODIUM AND SULBACTAM SODIUM FOR INJECTION [Concomitant]
     Indication: Treatment delayed
     Route: 042
     Dates: start: 20210521, end: 20210524
  256. CEFOPERAZON E SODIUM AND SULBACTAM SODIUM FOR INJECTION [Concomitant]
     Indication: Febrile neutropenia
     Route: 042
     Dates: start: 20210521, end: 20210524
  257. CEFOPERAZON E SODIUM AND SULBACTAM SODIUM FOR INJECTION [Concomitant]
     Indication: Treatment delayed
     Route: 042
     Dates: start: 20210521, end: 20210524
  258. INDOMETACIN SUPPOSITORIE S [Concomitant]
     Indication: Antitussive therapy
     Route: 048
     Dates: start: 20210521, end: 20210522
  259. INDOMETACIN SUPPOSITORIE S [Concomitant]
     Indication: Antitussive therapy
     Route: 048
     Dates: start: 20210521, end: 20210522
  260. INDOMETACIN SUPPOSITORIE S [Concomitant]
     Indication: Antitussive therapy
     Route: 048
     Dates: start: 20210521, end: 20210522
  261. MEGESTROL ACETATE DISPERSIBLE TABLETS [Concomitant]
     Indication: Decreased appetite
     Route: 048
     Dates: start: 20210519, end: 20210528
  262. MEGESTROL ACETATE DISPERSIBLE TABLETS [Concomitant]
     Indication: Increased appetite
     Route: 048
     Dates: start: 20210519, end: 20210528
  263. MEGESTROL ACETATE DISPERSIBLE TABLETS [Concomitant]
     Indication: Decreased appetite
     Route: 048
     Dates: start: 20210519, end: 20210528
  264. MEGESTROL ACETATE DISPERSIBLE TABLETS [Concomitant]
     Indication: Increased appetite
     Route: 048
     Dates: start: 20210519, end: 20210528
  265. MEGESTROL ACETATE DISPERSIBLE TABLETS [Concomitant]
     Indication: Decreased appetite
     Route: 048
     Dates: start: 20210519, end: 20210528
  266. MEGESTROL ACETATE DISPERSIBLE TABLETS [Concomitant]
     Indication: Increased appetite
     Route: 048
     Dates: start: 20210519, end: 20210528
  267. TERBUTALINES ULPHATESOLUT IONFORNEBULIZ ATION [Concomitant]
     Indication: Treatment delayed
     Route: 055
     Dates: start: 20210521, end: 20210603
  268. TERBUTALINES ULPHATESOLUT IONFORNEBULIZ ATION [Concomitant]
     Indication: Treatment delayed
     Route: 055
     Dates: start: 20210521, end: 20210603
  269. TERBUTALINES ULPHATESOLUT IONFORNEBULIZ ATION [Concomitant]
     Indication: Treatment delayed
     Route: 055
     Dates: start: 20210521, end: 20210603

REACTIONS (3)
  - Platelet count decreased [Recovered/Resolved]
  - Febrile neutropenia [Recovered/Resolved]
  - White blood cell count decreased [Recovered/Resolved]

NARRATIVE: CASE EVENT DATE: 20210427
